FAERS Safety Report 23795255 (Version 1)
Quarter: 2024Q2

REPORT INFORMATION
  Report Type: Spontaneous
  Country: US (occurrence: US)
  Receive Date: 20240429
  Receipt Date: 20240429
  Transmission Date: 20240716
  Serious: Yes (Death)
  Sender: FDA-Public Use
  Company Number: US-DRL-USA-LIT/USA/24/0006153

PATIENT
  Age: 49 Year
  Sex: Male

DRUGS (27)
  1. OLANZAPINE [Suspect]
     Active Substance: OLANZAPINE
     Indication: Schizophrenia
     Dosage: 10 MG AT BEDTIME
  2. OLANZAPINE [Suspect]
     Active Substance: OLANZAPINE
     Dosage: 5 MG AT NIGHT
  3. OLANZAPINE [Suspect]
     Active Substance: OLANZAPINE
     Dosage: 20 MG NIGHTLY
  4. QUETIAPINE [Suspect]
     Active Substance: QUETIAPINE
     Indication: Schizophrenia
  5. LEVETIRACETAM [Suspect]
     Active Substance: LEVETIRACETAM
     Indication: Epilepsy
  6. DIAZEPAM [Suspect]
     Active Substance: DIAZEPAM
     Indication: Schizophrenia
     Dosage: 12.5 MG FOUR TIMES A DAY
  7. VALPROIC ACID [Suspect]
     Active Substance: VALPROIC ACID
     Indication: Schizophrenia
     Dosage: 800 MG THREE TIMES A DAY
     Route: 042
  8. PROPOFOL [Suspect]
     Active Substance: PROPOFOL
     Indication: Schizophrenia
  9. ARIPIPRAZOLE [Suspect]
     Active Substance: ARIPIPRAZOLE
     Indication: Schizophrenia
  10. CHLORPROMAZINE [Suspect]
     Active Substance: CHLORPROMAZINE
     Indication: Schizophrenia
     Dosage: INCREASED
  11. FENTANYL [Suspect]
     Active Substance: FENTANYL\FENTANYL CITRATE
     Indication: Schizophrenia
  12. ARIPIPRAZOLE [Suspect]
     Active Substance: ARIPIPRAZOLE
     Indication: Schizophrenia
  13. AMANTADINE [Suspect]
     Active Substance: AMANTADINE
     Indication: Schizophrenia
  14. AMANTADINE [Suspect]
     Active Substance: AMANTADINE
  15. MIDAZOLAM [Suspect]
     Active Substance: MIDAZOLAM
     Indication: Epilepsy
     Route: 042
  16. CLOZAPINE [Suspect]
     Active Substance: CLOZAPINE
     Indication: Schizophrenia
  17. CLOZAPINE [Suspect]
     Active Substance: CLOZAPINE
  18. LORAZEPAM [Suspect]
     Active Substance: LORAZEPAM
     Indication: Schizophrenia
     Route: 030
  19. LORAZEPAM [Suspect]
     Active Substance: LORAZEPAM
     Dosage: OFTEN EXCEEDED 20 MG DAILY
     Route: 030
  20. LORAZEPAM [Suspect]
     Active Substance: LORAZEPAM
     Dosage: 1 MG EVERY 8 HOURS
  21. LORAZEPAM [Suspect]
     Active Substance: LORAZEPAM
     Dosage: INCREASED
  22. LORAZEPAM [Suspect]
     Active Substance: LORAZEPAM
     Dosage: 1.5 MG FOUR TIMES A DAY
  23. LORAZEPAM [Suspect]
     Active Substance: LORAZEPAM
     Dosage: 1 MG EVERY 8 HOURS
  24. LORAZEPAM [Suspect]
     Active Substance: LORAZEPAM
     Dosage: 1 MG EVERY 8 HOURS
  25. LORAZEPAM [Suspect]
     Active Substance: LORAZEPAM
     Dosage: 1 MG EVERY 8 HOURS
  26. LITHIUM [Suspect]
     Active Substance: LITHIUM
     Indication: Schizophrenia
  27. PIMAVANSERIN [Suspect]
     Active Substance: PIMAVANSERIN
     Indication: Schizophrenia

REACTIONS (5)
  - Drug ineffective [Fatal]
  - Respiratory arrest [Fatal]
  - Condition aggravated [Fatal]
  - Pneumonia aspiration [Fatal]
  - Product use in unapproved indication [Unknown]
